FAERS Safety Report 7910801-0 (Version None)
Quarter: 2011Q4

REPORT INFORMATION
  Report Type: 
  Country: None (occurrence: None)
  Receive Date: 20111113
  Receipt Date: 20111104
  Transmission Date: 20120403
  Serious: Yes (Hospitalization)
  Sender: FDA-Public Use
  Company Number: JP-AMGEN-JPNCT2011059198

PATIENT
  Age: 74 Year
  Sex: Male
  Weight: 60 kg

DRUGS (11)
  1. PANITUMUMAB [Suspect]
     Indication: COLORECTAL CANCER
     Dosage: 360 MG, Q2WK
     Route: 041
     Dates: start: 20111026, end: 20111026
  2. CAMPTOSAR [Suspect]
     Indication: COLORECTAL CANCER
     Route: 041
     Dates: start: 20111026, end: 20111026
  3. LEVOLEUCOVORIN CALCIUM [Concomitant]
     Indication: COLORECTAL CANCER
     Route: 041
     Dates: start: 20111026, end: 20111026
  4. KYTRIL [Concomitant]
     Route: 042
     Dates: start: 20111026, end: 20111026
  5. RIZE [Concomitant]
     Route: 048
  6. FLUOROURACIL [Suspect]
     Route: 041
     Dates: start: 20111026, end: 20111028
  7. MAGMITT [Concomitant]
     Route: 048
  8. DILTIAZEM HCL [Concomitant]
     Route: 048
  9. DECADRON [Concomitant]
     Route: 042
     Dates: start: 20111026, end: 20111026
  10. CARVEDILOL [Concomitant]
     Route: 048
  11. FLUOROURACIL [Suspect]
     Indication: COLORECTAL CANCER
     Route: 040
     Dates: start: 20111026, end: 20111026

REACTIONS (4)
  - DECREASED APPETITE [None]
  - DIARRHOEA [None]
  - VOMITING [None]
  - ENTEROCOLITIS HAEMORRHAGIC [None]
